FAERS Safety Report 5612003-X (Version None)
Quarter: 2008Q1

REPORT INFORMATION
  Report Type: 
  Country: None (occurrence: None)
  Receive Date: 20080128
  Receipt Date: 20080115
  Transmission Date: 20080703
  Serious: Yes (Hospitalization, Other)
  Sender: FDA-Public Use
  Company Number: 2008006550

PATIENT
  Age: 58 Year
  Sex: Male

DRUGS (6)
  1. DALTEPARIN SODIUM [Suspect]
     Indication: THROMBOSIS PROPHYLAXIS
     Dosage: 5000 I. U. (5000 I. U.), SUBCUTANEOUS
     Route: 058
     Dates: start: 20050723
  2. ALLOPURINOL [Suspect]
     Indication: HYPERURICAEMIA
     Dosage: 300 MG, (300 MG), ORAL
     Route: 048
     Dates: start: 20050730, end: 20050814
  3. NOVAMINSULFON BRAUN (METAMIZOLE SODIUM) [Suspect]
     Indication: PAIN
     Dosage: 160 DROP (40 DROP, QID), ORAL
     Route: 048
     Dates: start: 20050723
  4. GABAPENTIN [Suspect]
     Indication: PAIN
     Dosage: 600 MG (300 MG, BID)
     Dates: start: 20040101
  5. METOCLOPRAMIDE [Suspect]
     Indication: NAUSEA
     Dosage: 20 DROP, ORAL
     Route: 048
     Dates: start: 20000101
  6. IBUPROFEN [Concomitant]

REACTIONS (1)
  - STEVENS-JOHNSON SYNDROME [None]
